FAERS Safety Report 11925626 (Version 2)
Quarter: 2016Q1

REPORT INFORMATION
  Report Type: Report from Study
  Country: NL (occurrence: NL)
  Receive Date: 20160118
  Receipt Date: 20160126
  Transmission Date: 20160526
  Serious: Yes (Other)
  Sender: FDA-Public Use
  Company Number: NL-BAXALTA-2016BLT000097

PATIENT
  Age: 41 Year
  Sex: Female

DRUGS (3)
  1. HYQVIA [Suspect]
     Active Substance: HUMAN IMMUNOGLOBULIN G\HYALURONIDASE RECOMBINANT HUMAN
     Dosage: EVERY 2 WK
     Route: 058
     Dates: start: 20160111, end: 20160111
  2. HYQVIA [Suspect]
     Active Substance: HUMAN IMMUNOGLOBULIN G\HYALURONIDASE RECOMBINANT HUMAN
     Indication: PRIMARY IMMUNODEFICIENCY SYNDROME
     Dosage: 20 G, EVERY 2 WK
     Route: 058
     Dates: start: 20141113, end: 20141113
  3. HYQVIA [Suspect]
     Active Substance: HUMAN IMMUNOGLOBULIN G\HYALURONIDASE RECOMBINANT HUMAN
     Indication: HYPOGAMMAGLOBULINAEMIA
     Dosage: EVERY 2 WK
     Route: 058
     Dates: start: 20151229, end: 20151229

REACTIONS (3)
  - Skin induration [Unknown]
  - Weight increased [Unknown]
  - Administration site cellulitis [Unknown]

NARRATIVE: CASE EVENT DATE: 20150201
